FAERS Safety Report 6184137-5 (Version None)
Quarter: 2009Q2

REPORT INFORMATION
  Report Type: 
  Country: None (occurrence: None)
  Receive Date: 20090508
  Receipt Date: 20090430
  Transmission Date: 20091009
  Serious: Yes (Hospitalization)
  Sender: FDA-Public Use
  Company Number: US-BAYER-200918511NA

PATIENT
  Age: 80 Year
  Sex: Female
  Weight: 68 kg

DRUGS (7)
  1. SORAFENIB [Suspect]
     Indication: NON-SMALL CELL LUNG CANCER
     Dosage: TOTAL DAILY DOSE: 800 MG  UNIT DOSE: 200 MG
     Route: 048
     Dates: start: 20090227
  2. ERLOTINIB [Suspect]
     Indication: NON-SMALL CELL LUNG CANCER
     Dosage: TOTAL DAILY DOSE: 150 MG
     Route: 048
     Dates: start: 20090227
  3. NORVASC [Concomitant]
     Dosage: TOTAL DAILY DOSE: 10 MG
     Dates: start: 20081001
  4. COREG [Concomitant]
     Dosage: TOTAL DAILY DOSE: 50 MG
     Dates: start: 20081001
  5. LOZOL [Concomitant]
     Dates: start: 20060601
  6. LIPITOR [Concomitant]
     Dosage: TOTAL DAILY DOSE: 10 MG
     Dates: start: 20070301
  7. FERROUS SULFATE TAB [Concomitant]
     Dosage: TOTAL DAILY DOSE: 325 MG
     Dates: start: 20070129

REACTIONS (3)
  - ASTHENIA [None]
  - BLOOD ELECTROLYTES ABNORMAL [None]
  - DIARRHOEA [None]
